FAERS Safety Report 6081451-9 (Version None)
Quarter: 2009Q1

REPORT INFORMATION
  Report Type: 
  Country: None (occurrence: None)
  Receive Date: 20090218
  Receipt Date: 20090206
  Transmission Date: 20090719
  Serious: Yes (Other)
  Sender: FDA-Public Use
  Company Number: US-JNJFOC-20090202120

PATIENT
  Sex: Female

DRUGS (1)
  1. REMICADE [Suspect]
     Indication: RHEUMATOID ARTHRITIS
     Dosage: FOR 2 YEARS; INITIATED IN ABOUT 2004
     Route: 042

REACTIONS (2)
  - NON-HODGKIN'S LYMPHOMA [None]
  - SINUSITIS [None]
